FAERS Safety Report 25649629 (Version 1)
Quarter: 2025Q3

REPORT INFORMATION
  Report Type: Spontaneous
  Country: US (occurrence: US)
  Receive Date: 20250806
  Receipt Date: 20250806
  Transmission Date: 20251020
  Serious: Yes (Other)
  Sender: COOPERSURGICAL
  Company Number: US-COOPERSURGICAL, INC.-2025CPS005746

PATIENT
  Age: 26 Year
  Sex: Female
  Weight: 68.027 kg

DRUGS (3)
  1. PARAGARD T 380A [Suspect]
     Active Substance: COPPER
     Indication: Contraception
     Route: 015
     Dates: start: 20160121
  2. WEGOVY [Concomitant]
     Active Substance: SEMAGLUTIDE
     Dates: start: 202306
  3. MICRONOR [Concomitant]
     Active Substance: NORETHINDRONE

REACTIONS (29)
  - Cervix injury [Recovered/Resolved]
  - Surgery [Recovered/Resolved]
  - Infertility female [Not Recovered/Not Resolved]
  - Salpingectomy [Recovered/Resolved]
  - Hysterectomy [Recovered/Resolved]
  - Reproductive complication associated with device [Not Recovered/Not Resolved]
  - Haemorrhagic ovarian cyst [Unknown]
  - Device breakage [Recovered/Resolved]
  - Foreign body in reproductive tract [Recovered/Resolved]
  - Complication of device removal [Recovered/Resolved]
  - Embedded device [Recovered/Resolved]
  - Procedural haemorrhage [Recovered/Resolved]
  - Insomnia [Unknown]
  - Anxiety [Unknown]
  - Depression [Unknown]
  - Vaginal odour [Unknown]
  - Adnexa uteri cyst [Recovered/Resolved]
  - Dyspepsia [Unknown]
  - Cervical cyst [Recovered/Resolved]
  - Adenomyosis [Recovered/Resolved]
  - Endometriosis [Unknown]
  - Device material issue [Recovered/Resolved]
  - Device dislocation [Recovered/Resolved]
  - Dysmenorrhoea [Recovered/Resolved]
  - Abdominal pain [Unknown]
  - Pelvic pain [Unknown]
  - Pain [Recovered/Resolved]
  - Heavy menstrual bleeding [Recovered/Resolved]
  - Dyspareunia [Recovered/Resolved]

NARRATIVE: CASE EVENT DATE: 20160121
